FAERS Safety Report 20048616 (Version 2)
Quarter: 2021Q4

REPORT INFORMATION
  Report Type: Report from Study
  Country: US (occurrence: US)
  Receive Date: 20211109
  Receipt Date: 20211122
  Transmission Date: 20220304
  Serious: Yes (Hospitalization, Other)
  Sender: FDA-Public Use
  Company Number: US-SANOFI-00839446

PATIENT
  Age: 44 Year
  Sex: Female

DRUGS (1)
  1. TERIFLUNOMIDE [Suspect]
     Active Substance: TERIFLUNOMIDE
     Indication: Multiple sclerosis
     Dosage: 14 MG, QD
     Route: 048
     Dates: start: 20210923, end: 202109

REACTIONS (6)
  - Inflammation [Unknown]
  - Optic neuritis [Unknown]
  - Retinal tear [Unknown]
  - Cataract [Unknown]
  - Visual impairment [Unknown]
  - Cough [Unknown]

NARRATIVE: CASE EVENT DATE: 20210101
